FAERS Safety Report 25368311 (Version 11)
Quarter: 2025Q4

REPORT INFORMATION
  Report Type: Report from Study
  Country: CA (occurrence: CA)
  Receive Date: 20250528
  Receipt Date: 20251211
  Transmission Date: 20260118
  Serious: Yes (Hospitalization, Other)
  Sender: CELLTRION
  Company Number: CA-CELLTRION INC.-2025CA002936

PATIENT

DRUGS (15)
  1. INFLIXIMAB-DYYB [Suspect]
     Active Substance: INFLIXIMAB-DYYB
     Indication: Colitis ulcerative
     Dosage: 1200 MG IV Q8 WEEKS/1200 MG (EVERY 8 WEEKS)
     Route: 042
     Dates: start: 20250414
  2. INFLIXIMAB-DYYB [Suspect]
     Active Substance: INFLIXIMAB-DYYB
     Dosage: 240 MG, EVERY 14 DAYS
     Route: 042
     Dates: start: 20250414
  3. INFLIXIMAB-DYYB [Suspect]
     Active Substance: INFLIXIMAB-DYYB
     Dosage: 1200 MG Q8 WEEKS
     Route: 042
     Dates: start: 20250414
  4. INFLIXIMAB-DYYB [Suspect]
     Active Substance: INFLIXIMAB-DYYB
     Dosage: 1200 MG Q8 WEEKS
     Route: 042
     Dates: start: 20250414
  5. INFLIXIMAB-DYYB [Suspect]
     Active Substance: INFLIXIMAB-DYYB
     Dosage: 1200 MG EVERY 8 WEEKS
     Route: 042
     Dates: start: 20250514
  6. INFLIXIMAB-DYYB [Suspect]
     Active Substance: INFLIXIMAB-DYYB
     Dosage: 10 MG/KG
     Dates: start: 20250624
  7. INFLIXIMAB-DYYB [Suspect]
     Active Substance: INFLIXIMAB-DYYB
     Dosage: 1100 MG, Q4WEEKS
     Route: 042
     Dates: start: 20250414
  8. INFLIXIMAB-DYYB [Suspect]
     Active Substance: INFLIXIMAB-DYYB
     Dosage: 1100 MG, Q4WEEKS
     Route: 042
     Dates: start: 20250414
  9. INFLIXIMAB-DYYB [Suspect]
     Active Substance: INFLIXIMAB-DYYB
     Dosage: 1100 MG, Q4WEEKS
     Route: 042
     Dates: start: 20250414
  10. INFLIXIMAB-DYYB [Suspect]
     Active Substance: INFLIXIMAB-DYYB
     Dosage: 1100 MG, Q4WEEKS
     Route: 042
     Dates: start: 20250414
  11. INFLIXIMAB-DYYB [Suspect]
     Active Substance: INFLIXIMAB-DYYB
     Dosage: 1100 MG, Q4WEEKS
     Route: 042
     Dates: start: 20250414
  12. INFLIXIMAB-DYYB [Suspect]
     Active Substance: INFLIXIMAB-DYYB
     Dosage: 1100 MG, Q4WEEKS
     Route: 042
     Dates: start: 20250414, end: 2025
  13. INFLIXIMAB [Suspect]
     Active Substance: INFLIXIMAB
     Indication: Colitis ulcerative
     Dosage: 240 MG S/C Q 14 DAYS/240 MG (EVERY 14 DAYS)
     Route: 058
     Dates: start: 20241125, end: 2025
  14. INFLIXIMAB [Suspect]
     Active Substance: INFLIXIMAB
     Indication: Colitis ulcerative
     Dosage: 1200 MG EVERY 8 WEEKS
     Route: 042
     Dates: start: 20250514
  15. PREDNISONE [Concomitant]
     Active Substance: PREDNISONE
     Dosage: 50 MG ONCE DAILY
     Route: 048

REACTIONS (22)
  - Hospitalisation [Unknown]
  - Malaise [Unknown]
  - Colitis ulcerative [Recovering/Resolving]
  - Frequent bowel movements [Recovering/Resolving]
  - Diabetes mellitus [Unknown]
  - Tooth fracture [Not Recovered/Not Resolved]
  - Abdominal pain [Not Recovered/Not Resolved]
  - Haematochezia [Not Recovered/Not Resolved]
  - Diarrhoea [Not Recovered/Not Resolved]
  - Symptom recurrence [Not Recovered/Not Resolved]
  - Defaecation urgency [Recovering/Resolving]
  - Muscle spasms [Recovering/Resolving]
  - Dysuria [Recovering/Resolving]
  - Weight decreased [Unknown]
  - Mucous stools [Not Recovered/Not Resolved]
  - Eye infection [Recovered/Resolved]
  - Pyrexia [Recovered/Resolved]
  - Prescribed overdose [Unknown]
  - Inappropriate schedule of product administration [Unknown]
  - Overdose [Unknown]
  - Intentional dose omission [Not Recovered/Not Resolved]
  - Intentional product use issue [Unknown]

NARRATIVE: CASE EVENT DATE: 20250624
